FAERS Safety Report 25375400 (Version 1)
Quarter: 2025Q2

REPORT INFORMATION
  Report Type: Spontaneous
  Country: PL (occurrence: PL)
  Receive Date: 20250529
  Receipt Date: 20250529
  Transmission Date: 20250717
  Serious: Yes (Other)
  Sender: NOVARTIS
  Company Number: PL-002147023-NVSC2025PL083810

PATIENT
  Age: 69 Year
  Sex: Male

DRUGS (1)
  1. IMATINIB [Suspect]
     Active Substance: IMATINIB
     Indication: Chronic myeloid leukaemia
     Dosage: 400 MG, QD
     Route: 065

REACTIONS (14)
  - Pulmonary artery stenosis [Unknown]
  - Pericardial effusion [Unknown]
  - Tricuspid valve incompetence [Unknown]
  - Mitral valve incompetence [Unknown]
  - Cardiac valve sclerosis [Unknown]
  - Pulmonary hypertension [Unknown]
  - Ventricular dysfunction [Unknown]
  - Pleural effusion [Unknown]
  - Inferior vena cava dilatation [Unknown]
  - Right ventricular enlargement [Unknown]
  - Neutrophilia [Unknown]
  - Atelectasis [Unknown]
  - Cardiac hypertrophy [Unknown]
  - Drug ineffective [Unknown]
